FAERS Safety Report 17164480 (Version 3)
Quarter: 2020Q2

REPORT INFORMATION
  Report Type: Spontaneous
  Country: US (occurrence: US)
  Receive Date: 20191217
  Receipt Date: 20200519
  Transmission Date: 20200713
  Serious: No
  Sender: FDA-Public Use
  Company Number: US-PFIZER INC-2018317675

PATIENT
  Age: 87 Year
  Sex: Male

DRUGS (1)
  1. IBRANCE [Suspect]
     Active Substance: PALBOCICLIB
     Indication: METASTASES TO LYMPH NODES
     Dosage: 125 MG, CYCLIC [1 CAP (S) ORALLY ONCE A DAY 2 WEEKS ON AND 1 WEEK OFF]
     Route: 048

REACTIONS (3)
  - Off label use [Unknown]
  - Confusional state [Unknown]
  - Product use issue [Unknown]
